FAERS Safety Report 20517195 (Version 2)
Quarter: 2022Q1

REPORT INFORMATION
  Report Type: Other
  Country: US (occurrence: None)
  Receive Date: 20220225
  Receipt Date: 20220330
  Transmission Date: 20220424
  Serious: No
  Sender: FDA-Public Use
  Company Number: US-ROCHE-3031549

PATIENT
  Age: 34 Year
  Sex: Female
  Weight: 59.020 kg

DRUGS (2)
  1. OCREVUS [Suspect]
     Active Substance: OCRELIZUMAB
     Indication: Relapsing-remitting multiple sclerosis
     Dosage: (PRESCRIBED AS INFUSE 600 MG EVERY 6 MONTHS)
     Route: 042
     Dates: start: 2019
  2. OCREVUS [Suspect]
     Active Substance: OCRELIZUMAB
     Dosage: DATE OF TREATMENT: 28/JUN/2019, 12/JUL/2019, 17/JAN/2020, 17/JUL/2020, 22/JAN/2021, 23/JUL/2021, 04/
     Route: 042
     Dates: start: 20190628

REACTIONS (1)
  - COVID-19 [Unknown]

NARRATIVE: CASE EVENT DATE: 20211201
